FAERS Safety Report 6193435-0 (Version None)
Quarter: 2009Q2

REPORT INFORMATION
  Report Type: 
  Country: None (occurrence: None)
  Receive Date: 20090518
  Receipt Date: 20090106
  Transmission Date: 20091009
  Serious: No
  Sender: FDA-Public Use
  Company Number: US-ABBOTT-09P-163-0495936-00

PATIENT
  Age: 45 Year
  Sex: Female

DRUGS (3)
  1. AZMACORT [Suspect]
     Indication: DRUG USE FOR UNKNOWN INDICATION
  2. ALLEGRA [Concomitant]
     Indication: DRUG USE FOR UNKNOWN INDICATION
  3. ALVESCO [Concomitant]
     Indication: ASTHMA
     Dosage: BID AS NEEDED
     Route: 055
     Dates: start: 20080901

REACTIONS (1)
  - CANDIDIASIS [None]
